FAERS Safety Report 8008323-4 (Version None)
Quarter: 2011Q4

REPORT INFORMATION
  Report Type: 
  Country: None (occurrence: None)
  Receive Date: 20111227
  Receipt Date: 20111216
  Transmission Date: 20120403
  Serious: Yes (Other)
  Sender: FDA-Public Use
  Company Number: JP-ROCHE-1023818

PATIENT
  Age: 6 Decade
  Sex: Male

DRUGS (1)
  1. XELODA [Suspect]
     Indication: LARGE INTESTINE CARCINOMA
     Dosage: DOSAGE IS UNCERTAIN.
     Route: 048

REACTIONS (2)
  - PALMAR-PLANTAR ERYTHRODYSAESTHESIA SYNDROME [None]
  - MALIGNANT MELANOMA [None]
